FAERS Safety Report 15656584 (Version 1)
Quarter: 2018Q4

REPORT INFORMATION
  Report Type: Report from Study
  Country: HN (occurrence: HN)
  Receive Date: 20181126
  Receipt Date: 20181126
  Transmission Date: 20190205
  Serious: Yes (Other)
  Sender: FDA-Public Use
  Company Number: HN-SA-2018SA315600

PATIENT
  Age: 62 Year
  Sex: Female

DRUGS (2)
  1. INSULIN GLARGINE [Suspect]
     Active Substance: INSULIN GLARGINE
     Indication: DIABETES MELLITUS
     Dosage: 55 IU, QD
     Route: 058
     Dates: start: 2016
  2. COAPROVEL [Suspect]
     Active Substance: HYDROCHLOROTHIAZIDE\IRBESARTAN
     Indication: HYPERTENSION
     Dosage: 1 TABLET (300 MG OF IRBESARTAN + 12.5 MG OF HYDROCHLOROTHIAZIDE)
     Route: 048
     Dates: start: 201805

REACTIONS (2)
  - Limb operation [Unknown]
  - Knee arthroplasty [Unknown]

NARRATIVE: CASE EVENT DATE: 20181108
